FAERS Safety Report 18244558 (Version 5)
Quarter: 2021Q2

REPORT INFORMATION
  Report Type: Report from Study
  Country: AU (occurrence: AU)
  Receive Date: 20200909
  Receipt Date: 20210525
  Transmission Date: 20210717
  Serious: Yes (Other)
  Sender: FDA-Public Use
  Company Number: AU-REGENERON PHARMACEUTICALS, INC.-2020-74843

PATIENT

DRUGS (2)
  1. EYLEA [Suspect]
     Active Substance: AFLIBERCEPT
     Dosage: UNK, Q4WK, IN BOTH EYES
     Route: 031
  2. EYLEA [Suspect]
     Active Substance: AFLIBERCEPT
     Indication: DIABETIC RETINAL OEDEMA
     Dosage: BOTH EYES, RECEIVED A TOTAL OF THREE INJECTIONS.
     Route: 031
     Dates: start: 202006

REACTIONS (23)
  - Asthenia [Unknown]
  - Visual impairment [Unknown]
  - Photophobia [Unknown]
  - Metamorphopsia [Not Recovered/Not Resolved]
  - Chronic kidney disease [Unknown]
  - Blindness transient [Recovered/Resolved]
  - Respiratory symptom [Unknown]
  - Feeling abnormal [Unknown]
  - Blood glucose fluctuation [Unknown]
  - Anxiety [Unknown]
  - Dyspnoea [Unknown]
  - Blindness unilateral [Recovering/Resolving]
  - Injection site erythema [Recovering/Resolving]
  - Somnolence [Unknown]
  - Gait disturbance [Unknown]
  - Photophobia [Not Recovered/Not Resolved]
  - Paranoia [Unknown]
  - Visual impairment [Recovered/Resolved]
  - Vision blurred [Unknown]
  - Depression [Not Recovered/Not Resolved]
  - Photophobia [Recovered/Resolved]
  - Visual impairment [Not Recovered/Not Resolved]
  - Eye pain [Unknown]

NARRATIVE: CASE EVENT DATE: 20210429
